FAERS Safety Report 20379054 (Version 4)
Quarter: 2022Q1

REPORT INFORMATION
  Report Type: Spontaneous
  Country: US (occurrence: US)
  Receive Date: 20220126
  Receipt Date: 20220324
  Transmission Date: 20220423
  Serious: No
  Sender: FDA-Public Use
  Company Number: US-PFIZER INC-202101484458

PATIENT
  Age: 48 Year
  Sex: Female

DRUGS (9)
  1. IBRANCE [Suspect]
     Active Substance: PALBOCICLIB
     Dosage: 125 MG
     Dates: start: 20211001
  2. IBRANCE [Suspect]
     Active Substance: PALBOCICLIB
     Dosage: 125 MG
     Dates: start: 20211020
  3. IBRANCE [Suspect]
     Active Substance: PALBOCICLIB
     Dosage: 125 MG
     Dates: start: 20211021
  4. IBRANCE [Suspect]
     Active Substance: PALBOCICLIB
     Dosage: 125 MG
     Dates: start: 20211022
  5. IBRANCE [Suspect]
     Active Substance: PALBOCICLIB
     Dosage: 125 MG
     Dates: start: 20211024
  6. IBRANCE [Suspect]
     Active Substance: PALBOCICLIB
     Dosage: 125 MG
     Dates: start: 20211101
  7. IBRANCE [Suspect]
     Active Substance: PALBOCICLIB
     Dosage: 125 MG
     Dates: start: 20211115
  8. OXYBUTYNIN [Concomitant]
     Active Substance: OXYBUTYNIN
     Dosage: UNK
  9. REMERON [Concomitant]
     Active Substance: MIRTAZAPINE
     Dosage: UNK

REACTIONS (18)
  - Dizziness [Unknown]
  - Constipation [Unknown]
  - Nausea [Unknown]
  - Stomatitis [Unknown]
  - Discomfort [Unknown]
  - Diarrhoea [Unknown]
  - Dry skin [Unknown]
  - Dyspepsia [Unknown]
  - Feeling abnormal [Unknown]
  - Hypertension [Not Recovered/Not Resolved]
  - Mental fatigue [Unknown]
  - Scab [Not Recovered/Not Resolved]
  - Stomatitis [Recovered/Resolved]
  - Feeling abnormal [Unknown]
  - Dental dysaesthesia [Unknown]
  - Fatigue [Unknown]
  - Gingival pain [Unknown]
  - Dehydration [Unknown]
